FAERS Safety Report 6873772-4 (Version None)
Quarter: 2010Q3

REPORT INFORMATION
  Report Type: 
  Country: None (occurrence: None)
  Receive Date: 20100723
  Receipt Date: 20090319
  Transmission Date: 20110219
  Serious: No
  Sender: FDA-Public Use
  Company Number: US-PFIZER INC-2009186620

PATIENT
  Sex: Female
  Weight: 82 kg

DRUGS (4)
  1. CHANTIX [Suspect]
     Indication: SMOKING CESSATION THERAPY
     Dosage: 1 MG, 2X/DAY
     Dates: start: 20090101
  2. CIMETIDINE [Concomitant]
     Indication: GASTRIC DISORDER
  3. TRAMADOL HYDROCHLORIDE [Concomitant]
     Dosage: UNK
  4. VICODIN [Concomitant]
     Dosage: UNK

REACTIONS (5)
  - ABDOMINAL PAIN UPPER [None]
  - DEPRESSION [None]
  - DIARRHOEA [None]
  - INFLUENZA [None]
  - VOMITING [None]
